FAERS Safety Report 5061925-X (Version None)
Quarter: 2006Q3

REPORT INFORMATION
  Report Type: 
  Country: None (occurrence: None)
  Receive Date: 20060720
  Receipt Date: 20060720
  Transmission Date: 20061208
  Serious: Yes (Disabling)
  Sender: FDA-Public Use
  Company Number: None

PATIENT
  Age: 78 Year
  Sex: Female
  Weight: 99.3377 kg

DRUGS (4)
  1. LOVENOX [Suspect]
     Indication: THROMBOSIS PROPHYLAXIS
     Dosage: 30 MG OTO SUBCUT
     Route: 058
     Dates: start: 20060403, end: 20060404
  2. LOVENOX [Suspect]
     Indication: THROMBOSIS PROPHYLAXIS
     Dosage: 40 MG OTO SUBCUT
     Route: 058
     Dates: start: 20060404
  3. FENTANYL [Concomitant]
  4. BUPIVACAINE [Concomitant]

REACTIONS (4)
  - ANAESTHETIC COMPLICATION [None]
  - EXTRADURAL HAEMATOMA [None]
  - PARALYSIS [None]
  - POST PROCEDURAL COMPLICATION [None]
